FAERS Safety Report 18449080 (Version 1)
Quarter: 2020Q4

REPORT INFORMATION
  Report Type: Spontaneous
  Country: US (occurrence: US)
  Receive Date: 20201031
  Receipt Date: 20201031
  Transmission Date: 20210114
  Serious: Yes (Other)
  Sender: FDA-Public Use
  Company Number: US-NAPPMUNDI-USA-2020-0152375

PATIENT
  Sex: Female

DRUGS (2)
  1. SUBOXONE [Suspect]
     Active Substance: BUPRENORPHINE HYDROCHLORIDE\NALOXONE HYDROCHLORIDE
     Indication: NEURALGIA
     Dosage: UNK
     Route: 048
     Dates: start: 2016
  2. OXYCONTIN [Suspect]
     Active Substance: OXYCODONE HYDROCHLORIDE
     Indication: NEURALGIA
     Dosage: 80 MG, TID
     Route: 048
     Dates: start: 2000, end: 2004

REACTIONS (9)
  - Drug withdrawal syndrome [Not Recovered/Not Resolved]
  - Unevaluable event [Unknown]
  - Chills [Unknown]
  - Post-traumatic stress disorder [Unknown]
  - Vomiting [Unknown]
  - Drug dependence [Unknown]
  - Off label use [Unknown]
  - Diarrhoea [Unknown]
  - Drug abuse [Unknown]

NARRATIVE: CASE EVENT DATE: 2000
